FAERS Safety Report 6339603-6 (Version None)
Quarter: 2009Q3

REPORT INFORMATION
  Report Type: 
  Country: None (occurrence: None)
  Receive Date: 20090903
  Receipt Date: 20090831
  Transmission Date: 20100115
  Serious: Yes (Death, Hospitalization, Other)
  Sender: FDA-Public Use
  Company Number: FR-BRISTOL-MYERS SQUIBB COMPANY-14761878

PATIENT
  Age: 71 Year
  Sex: Male

DRUGS (16)
  1. ELISOR TABS [Suspect]
     Indication: HYPERCHOLESTEROLAEMIA
     Dosage: 1.5/D FROM THE END OF JUNE 2009
  2. NEORAL [Concomitant]
  3. CORTANCYL [Concomitant]
  4. AMLODIPINE [Concomitant]
  5. LASIX [Concomitant]
  6. XATRAL [Concomitant]
  7. LEVOTHYROXINE SODIUM [Concomitant]
  8. LEDERFOLINE [Concomitant]
  9. COLCHICINE [Concomitant]
  10. SINGULAIR [Concomitant]
  11. TOPALGIC [Concomitant]
  12. RENAGEL [Concomitant]
  13. VITAMIN K1 [Concomitant]
  14. CORDARONE [Concomitant]
  15. TAVANIC [Concomitant]
  16. CLAMOXYL [Concomitant]

REACTIONS (3)
  - RENAL FAILURE ACUTE [None]
  - RHABDOMYOLYSIS [None]
  - SEPSIS [None]
